FAERS Safety Report 6580281-9 (Version None)
Quarter: 2010Q1

REPORT INFORMATION
  Report Type: 
  Country: None (occurrence: None)
  Receive Date: 20100212
  Receipt Date: 20100208
  Transmission Date: 20100710
  Serious: Yes (Hospitalization)
  Sender: FDA-Public Use
  Company Number: GB-TEVA-223720ISR

PATIENT

DRUGS (1)
  1. CARBAMAZEPINE [Suspect]

REACTIONS (4)
  - AGGRESSION [None]
  - DELUSION [None]
  - NEUTROPENIA [None]
  - WHITE BLOOD CELL COUNT DECREASED [None]
